FAERS Safety Report 23322242 (Version 1)
Quarter: 2023Q4

REPORT INFORMATION
  Report Type: Spontaneous
  Country: CO (occurrence: CO)
  Receive Date: 20231220
  Receipt Date: 20231220
  Transmission Date: 20240109
  Serious: Yes (Death)
  Sender: FDA-Public Use
  Company Number: CO-PFIZER INC-PV202300205428

PATIENT
  Age: 95 Year
  Sex: Female

DRUGS (10)
  1. PALBOCICLIB [Suspect]
     Active Substance: PALBOCICLIB
     Dosage: 125 MG, DAILY
     Route: 048
     Dates: start: 20230210
  2. ACETAMINOPHEN [Concomitant]
     Active Substance: ACETAMINOPHEN
  3. PREGABALIN [Concomitant]
     Active Substance: PREGABALIN
  4. LETROZOLE [Concomitant]
     Active Substance: LETROZOLE
  5. LEVOTHYROXINE [Concomitant]
     Active Substance: LEVOTHYROXINE
  6. LOSARTAN [Concomitant]
     Active Substance: LOSARTAN
  7. MORPHINE [Concomitant]
     Active Substance: MORPHINE
  8. LACTULOSE [Concomitant]
     Active Substance: LACTULOSE
  9. BUPRENORPHINE [Concomitant]
     Active Substance: BUPRENORPHINE
  10. ERYTHROPOIETIN [Concomitant]
     Active Substance: ERYTHROPOIETIN

REACTIONS (1)
  - Death [Fatal]

NARRATIVE: CASE EVENT DATE: 20231128
